FAERS Safety Report 16262421 (Version 1)
Quarter: 2019Q2

REPORT INFORMATION
  Report Type: Spontaneous
  Country: CN (occurrence: CN)
  Receive Date: 20190501
  Receipt Date: 20190501
  Transmission Date: 20190711
  Serious: Yes (Other)
  Sender: FDA-Public Use
  Company Number: CN-BAXTER-2019BAX008519

PATIENT
  Age: 64 Year
  Sex: Female
  Weight: 61.5 kg

DRUGS (4)
  1. 0.9% SODIUM CHLORIDE INJECTION [Suspect]
     Active Substance: SODIUM CHLORIDE
     Indication: MEDICATION DILUTION
     Dosage: WITH ENDOXAN CTX 940 MG, FIRST CHEMOTHERAPY
     Route: 041
     Dates: start: 20190307, end: 20190307
  2. PHARMORUBICIN?RD [Suspect]
     Active Substance: EPIRUBICIN HYDROCHLORIDE
     Indication: BREAST CANCER FEMALE
     Dosage: WITH NS 100 ML, FIRST CHEMOTHERAPY
     Route: 041
     Dates: start: 20190307, end: 20190307
  3. ENDOXAN [Suspect]
     Active Substance: CYCLOPHOSPHAMIDE
     Indication: BREAST CANCER FEMALE
     Dosage: WITH NS 50 ML, FIRST CHEMOTHERAPY
     Route: 041
     Dates: start: 20190307, end: 20190307
  4. 0.9% SODIUM CHLORIDE INJECTION [Suspect]
     Active Substance: SODIUM CHLORIDE
     Dosage: WITH PHARMORUBICIN RD 134 MG, FIRST CHEMOTHERAPY
     Route: 041
     Dates: start: 20190307, end: 20190307

REACTIONS (1)
  - Agranulocytosis [Recovered/Resolved]

NARRATIVE: CASE EVENT DATE: 20190318
